FAERS Safety Report 5708998-6 (Version None)
Quarter: 2008Q2

REPORT INFORMATION
  Report Type: 
  Country: None (occurrence: None)
  Receive Date: 20080416
  Receipt Date: 20080416
  Transmission Date: 20081010
  Serious: Yes (Hospitalization)
  Sender: FDA-Public Use
  Company Number: None

PATIENT
  Age: 31 Year
  Sex: Female
  Weight: 100 kg

DRUGS (9)
  1. LITHIUM CARBONATE [Suspect]
     Indication: BIPOLAR DISORDER
     Dosage: 600MG BID PO CHRONIC
     Route: 048
  2. ORAL CONTRACEPTIVE [Concomitant]
  3. DEPAKENE [Concomitant]
  4. LITHIUM CARBONATE [Concomitant]
  5. PROPRANOLOL [Concomitant]
  6. CITRACEL [Concomitant]
  7. KEPPRA [Concomitant]
  8. BENZTROPINE MESYLATE [Concomitant]
  9. TRAZODONE HCL [Concomitant]

REACTIONS (7)
  - ASTHENIA [None]
  - ATAXIA [None]
  - CONVULSION [None]
  - DIALYSIS [None]
  - MENTAL STATUS CHANGES [None]
  - RENAL FAILURE ACUTE [None]
  - THERAPEUTIC AGENT TOXICITY [None]
